FAERS Safety Report 21155871 (Version 4)
Quarter: 2022Q4

REPORT INFORMATION
  Report Type: Spontaneous
  Country: US (occurrence: US)
  Receive Date: 20220801
  Receipt Date: 20221102
  Transmission Date: 20230112
  Serious: Yes (Hospitalization)
  Sender: FDA-Public Use
  Company Number: US-BRISTOL-MYERS SQUIBB COMPANY-2022-080020

PATIENT
  Age: 51 Year
  Sex: Female

DRUGS (2)
  1. SPRYCEL [Suspect]
     Active Substance: DASATINIB
     Indication: Chronic myeloid leukaemia
     Dosage: NP3247A/NP3246
     Route: 048
     Dates: start: 20220713
  2. SPRYCEL [Suspect]
     Active Substance: DASATINIB
     Dosage: ONCE DAILY
     Route: 048
     Dates: start: 20220715

REACTIONS (4)
  - Mucosal inflammation [Unknown]
  - Hospitalisation [Unknown]
  - Pyrexia [Unknown]
  - Constipation [Unknown]
